FAERS Safety Report 4540876-0 (Version None)
Quarter: 2004Q4

REPORT INFORMATION
  Report Type: 
  Country: None (occurrence: None)
  Receive Date: 20041229
  Receipt Date: 20041216
  Transmission Date: 20050328
  Serious: Yes (Hospitalization)
  Sender: FDA-Public Use
  Company Number: HQWYE102220DEC04

PATIENT
  Sex: Female
  Weight: 43.7 kg

DRUGS (4)
  1. ETANERCEPT [Suspect]
     Indication: JUVENILE ARTHRITIS
     Dosage: 0.4 MG/KG, TWICE WEEKLY
     Route: 058
     Dates: start: 20040119
  2. MENATETRENONE [Concomitant]
     Indication: OSTEOPOROSIS
     Dosage: 45 MG TOTAL DAILY DOSE
  3. VOLTAREN [Concomitant]
     Dosage: 75 MG TOTAL DAILY DOSE
  4. MUCOSTA [Concomitant]

REACTIONS (2)
  - ABDOMINAL PAIN LOWER [None]
  - C-REACTIVE PROTEIN INCREASED [None]
